FAERS Safety Report 25342843 (Version 1)
Quarter: 2025Q2

REPORT INFORMATION
  Report Type: Report from Study
  Country: US (occurrence: US)
  Receive Date: 20250521
  Receipt Date: 20250521
  Transmission Date: 20250716
  Serious: Yes (Death)
  Sender: DAIICHI
  Company Number: US-DSJP-DS-2025-134222-US

PATIENT
  Age: 71 Year
  Sex: Male

DRUGS (1)
  1. ENHERTU [Suspect]
     Active Substance: FAM-TRASTUZUMAB DERUXTECAN-NXKI
     Indication: Product used for unknown indication
     Dosage: INFUSE 449.28MG INTRAVEN OUSLY OVER 90 MINUTES (30 MINUTES FOR SUBSEQUE NT DOSES) ONCE EVERY 3 WEEKS
     Route: 042
     Dates: start: 20250319, end: 20250319

REACTIONS (2)
  - Death [Fatal]
  - Weight decreased [Not Recovered/Not Resolved]

NARRATIVE: CASE EVENT DATE: 20250402
